FAERS Safety Report 17285109 (Version 1)
Quarter: 2020Q1

REPORT INFORMATION
  Report Type: Other
  Country: US (occurrence: US)
  Receive Date: 20200117
  Receipt Date: 20200117
  Transmission Date: 20200409
  Serious: No
  Sender: FDA-Public Use
  Company Number: US-TARO-2019TAR00400

PATIENT

DRUGS (1)
  1. KETOCONAZOLE CREAM 2% [Suspect]
     Active Substance: KETOCONAZOLE
     Indication: SEBORRHOEA
     Route: 061

REACTIONS (4)
  - Application site irritation [Unknown]
  - Application site pain [Unknown]
  - Application site erythema [Unknown]
  - Reaction to excipient [Unknown]
